FAERS Safety Report 12169868 (Version 3)
Quarter: 2017Q2

REPORT INFORMATION
  Report Type: Report from Study
  Country: US (occurrence: US)
  Receive Date: 20160310
  Receipt Date: 20170411
  Transmission Date: 20170830
  Serious: Yes (Other)
  Sender: FDA-Public Use
  Company Number: US-GILEAD-2016-0202678

PATIENT
  Age: 79 Year
  Sex: Female

DRUGS (1)
  1. RANOLAZINE. [Suspect]
     Active Substance: RANOLAZINE
     Indication: ANGINA PECTORIS
     Dosage: 500 MG, UNK
     Route: 048

REACTIONS (3)
  - Blindness [Unknown]
  - Emotional disorder [Unknown]
  - Memory impairment [Unknown]
